FAERS Safety Report 16240642 (Version 1)
Quarter: 2019Q2

REPORT INFORMATION
  Report Type: Report from Study
  Country: US (occurrence: US)
  Receive Date: 20190425
  Receipt Date: 20190425
  Transmission Date: 20190711
  Serious: Yes (Hospitalization, Other)
  Sender: FDA-Public Use
  Company Number: PHHY2019US092635

PATIENT
  Age: 23 Year
  Sex: Female
  Weight: 77.6 kg

DRUGS (20)
  1. OMEPRAZOLE. [Suspect]
     Active Substance: OMEPRAZOLE
     Indication: PRODUCT USED FOR UNKNOWN INDICATION
     Route: 065
  2. TYVASO [Suspect]
     Active Substance: TREPROSTINIL
     Indication: PULMONARY ARTERIAL HYPERTENSION
     Dosage: 108 UG (FOUR TIMES A DAY), QID
     Route: 055
     Dates: start: 201304
  3. COUMADIN [Concomitant]
     Active Substance: WARFARIN SODIUM
     Indication: PULMONARY ARTERIAL HYPERTENSION
     Dosage: 2.5 MG, QD
     Route: 065
  4. FUROSEMIDE. [Suspect]
     Active Substance: FUROSEMIDE
     Indication: OEDEMA PERIPHERAL
     Dosage: 40 MG, QD
     Route: 048
     Dates: start: 2007
  5. POTASSIUM [Concomitant]
     Active Substance: POTASSIUM
     Indication: MINERAL SUPPLEMENTATION
     Dosage: 20 MEQ, QD
     Route: 065
     Dates: start: 20161207
  6. BERAPROST SODIUM [Suspect]
     Active Substance: BERAPROST SODIUM
     Dosage: 30 UG, QID
     Route: 048
  7. BERAPROST SODIUM [Suspect]
     Active Substance: BERAPROST SODIUM
     Dosage: 15 UG, QID
     Route: 048
     Dates: end: 20171014
  8. TYLENOL [Concomitant]
     Active Substance: ACETAMINOPHEN
     Indication: HEADACHE
     Dosage: 325 MG, PRN
     Route: 065
     Dates: start: 201304
  9. PANTOPRAZOLE [Concomitant]
     Active Substance: PANTOPRAZOLE
     Indication: GASTROOESOPHAGEAL REFLUX DISEASE
     Dosage: 40 MG, QD
     Route: 065
     Dates: start: 20170306
  10. SUCRALFATE. [Concomitant]
     Active Substance: SUCRALFATE
     Indication: GASTRITIS
     Dosage: 1 MG, BID
     Route: 065
     Dates: start: 20170815
  11. TYVASO [Suspect]
     Active Substance: TREPROSTINIL
     Dosage: 18-108 UG (3-18 BREATHS), QID
     Route: 055
     Dates: start: 20160930
  12. BERAPROST SODIUM [Suspect]
     Active Substance: BERAPROST SODIUM
     Dosage: 15 UG, QID
     Route: 048
     Dates: start: 20170729
  13. LETAIRIS [Concomitant]
     Active Substance: AMBRISENTAN
     Indication: PULMONARY ARTERIAL HYPERTENSION
     Dosage: 5 MG, QD
     Route: 065
     Dates: start: 200908
  14. COUMADIN [Concomitant]
     Active Substance: WARFARIN SODIUM
     Dosage: 1 MG, UNK
     Route: 065
     Dates: start: 2007
  15. FERROUS SULFATE. [Concomitant]
     Active Substance: FERROUS SULFATE
     Indication: PRODUCT USED FOR UNKNOWN INDICATION
     Dosage: UNK
     Route: 065
  16. MULTI VITAMIN [Concomitant]
     Active Substance: VITAMINS
     Indication: PRODUCT USED FOR UNKNOWN INDICATION
     Dosage: UNK
     Route: 065
  17. BERAPROST SODIUM [Suspect]
     Active Substance: BERAPROST SODIUM
     Indication: PULMONARY ARTERIAL HYPERTENSION
     Dosage: 15 UG, QID
     Route: 048
     Dates: start: 20160907
  18. DIGOXIN. [Concomitant]
     Active Substance: DIGOXIN
     Indication: PULMONARY ARTERIAL HYPERTENSION
     Dosage: 0.125 MG, QD
     Route: 065
     Dates: start: 201512
  19. FUROSEMIDE. [Suspect]
     Active Substance: FUROSEMIDE
     Dosage: 80 MG, UNK
     Route: 048
     Dates: start: 20161207
  20. ADCIRCA [Concomitant]
     Active Substance: TADALAFIL
     Indication: PULMONARY ARTERIAL HYPERTENSION
     Dosage: 40 MG, QD
     Route: 065
     Dates: start: 200908

REACTIONS (41)
  - Haematochezia [Recovered/Resolved]
  - Condition aggravated [Recovered/Resolved]
  - Pericardial effusion [Unknown]
  - Duodenitis [Unknown]
  - Scoliosis [Unknown]
  - Splenomegaly [Unknown]
  - Amylase increased [Unknown]
  - Dyspnoea [Unknown]
  - Diarrhoea [Recovered/Resolved]
  - Pulmonary arterial pressure abnormal [Unknown]
  - Left ventricular hypertrophy [Unknown]
  - Red cell distribution width increased [Unknown]
  - Pulmonary artery dilatation [Unknown]
  - Anal haemorrhage [Unknown]
  - Ovarian cyst [Unknown]
  - Cardiomegaly [Unknown]
  - Gastritis [Unknown]
  - Weight decreased [Unknown]
  - Chest pain [Unknown]
  - Adnexa uteri mass [Unknown]
  - Incorrect dose administered [Unknown]
  - Inflammatory bowel disease [Unknown]
  - Colitis [Unknown]
  - Right atrial enlargement [Unknown]
  - Blood pressure decreased [Unknown]
  - Bronchial wall thickening [Unknown]
  - Pulmonary mass [Unknown]
  - Abdominal pain [Unknown]
  - Proctitis ulcerative [Unknown]
  - Lipase increased [Unknown]
  - Abdominal discomfort [Unknown]
  - Abdominal pain upper [Unknown]
  - Hypopnoea [Recovered/Resolved]
  - Right ventricular enlargement [Unknown]
  - Hiatus hernia [Unknown]
  - Pancreatitis [Recovered/Resolved]
  - Tricuspid valve incompetence [Unknown]
  - Fluid overload [Unknown]
  - Red blood cell sedimentation rate increased [Unknown]
  - Left atrial enlargement [Unknown]
  - Gallbladder polyp [Unknown]

NARRATIVE: CASE EVENT DATE: 2017
